FAERS Safety Report 24337253 (Version 2)
Quarter: 2025Q1

REPORT INFORMATION
  Report Type: Report from Study
  Country: DE (occurrence: DE)
  Receive Date: 20240919
  Receipt Date: 20250331
  Transmission Date: 20250409
  Serious: Yes (Other)
  Sender: ROCHE
  Company Number: DE-ROCHE-10000079078

PATIENT
  Age: 35 Year
  Sex: Female

DRUGS (7)
  1. OCREVUS [Suspect]
     Active Substance: OCRELIZUMAB
     Indication: Relapsing-remitting multiple sclerosis
     Route: 058
     Dates: start: 20250304
  2. OCREVUS [Suspect]
     Active Substance: OCRELIZUMAB
     Dosage: SUBSEQUENT DOS EON 03/SEP/2024
     Route: 042
     Dates: start: 20240820
  3. OCREVUS [Suspect]
     Active Substance: OCRELIZUMAB
     Dosage: SUBSEQUENT DOS EON 03/SEP/2024
     Route: 042
     Dates: start: 20240903
  4. CANDESARTAN [Concomitant]
     Active Substance: CANDESARTAN
  5. ETHINYL ESTRADIOL\LEVONORGESTREL [Concomitant]
     Active Substance: ETHINYL ESTRADIOL\LEVONORGESTREL
  6. BUPROPION [Concomitant]
     Active Substance: BUPROPION
  7. NABIXIMOLS [Concomitant]
     Active Substance: NABIXIMOLS

REACTIONS (8)
  - Erythema [Recovered/Resolved]
  - Muscle spasms [Recovered/Resolved]
  - Cardiovascular insufficiency [Recovered/Resolved]
  - Dizziness [Recovered/Resolved]
  - Feeling hot [Recovered/Resolved]
  - Pyrexia [Recovered/Resolved]
  - Pain in extremity [Recovered/Resolved]
  - Injection site erythema [Recovered/Resolved]

NARRATIVE: CASE EVENT DATE: 20240820
